FAERS Safety Report 9753748 (Version 1)
Quarter: 2013Q4

REPORT INFORMATION
  Report Type: Spontaneous
  Country: US (occurrence: US)
  Receive Date: 20131213
  Receipt Date: 20131213
  Transmission Date: 20140711
  Serious: No
  Sender: FDA-Public Use
  Company Number: US-GILEAD-2010-0026577

PATIENT
  Age: 69 Year
  Sex: Male

DRUGS (10)
  1. LETAIRIS [Suspect]
     Indication: PULMONARY ARTERIAL HYPERTENSION
  2. CLARITIN [Concomitant]
  3. GABAPENTIN [Concomitant]
  4. ZOCOR [Concomitant]
  5. WARFARIN [Concomitant]
  6. FUROSEMIDE [Concomitant]
  7. DIGOXIN [Concomitant]
  8. COREG [Concomitant]
  9. SPIRONOLACTONE [Concomitant]
  10. POTASSIUM [Concomitant]

REACTIONS (1)
  - Muscle spasms [Not Recovered/Not Resolved]
